FAERS Safety Report 15859093 (Version 2)
Quarter: 2019Q1

REPORT INFORMATION
  Report Type: Spontaneous
  Country: IT (occurrence: IT)
  Receive Date: 20190123
  Receipt Date: 20190129
  Transmission Date: 20190417
  Serious: Yes (Hospitalization)
  Sender: FDA-Public Use
  Company Number: IT-MYLANLABS-2019M1005527

PATIENT
  Age: 88 Year
  Sex: Female

DRUGS (5)
  1. ENALAPRIL [Suspect]
     Active Substance: ENALAPRIL
     Indication: HYPERTENSION
     Dosage: 20 MILLIGRAM, QD
     Route: 048
  2. DIAMICRON [Concomitant]
     Active Substance: GLICLAZIDE
     Dosage: UNK
     Route: 065
  3. ARCOXIA [Concomitant]
     Active Substance: ETORICOXIB
     Dosage: UNK
     Route: 065
  4. SELES BETA [Concomitant]
     Active Substance: ATENOLOL
     Dosage: UNK
     Route: 065
  5. KADIUR [Interacting]
     Active Substance: BUTHIAZIDE\CANRENOATE POTASSIUM
     Indication: OEDEMA
     Dosage: 50 MILLIGRAM, QD
     Route: 048

REACTIONS (5)
  - Condition aggravated [Not Recovered/Not Resolved]
  - Hyperkalaemia [Not Recovered/Not Resolved]
  - Abnormal behaviour [Not Recovered/Not Resolved]
  - Hyponatraemia [Not Recovered/Not Resolved]
  - Drug interaction [Unknown]

NARRATIVE: CASE EVENT DATE: 20180701
